FAERS Safety Report 16817211 (Version 2)
Quarter: 2019Q4

REPORT INFORMATION
  Report Type: Report from Study
  Country: US (occurrence: US)
  Receive Date: 20190917
  Receipt Date: 20191101
  Transmission Date: 20200122
  Serious: Yes (Hospitalization, Other)
  Sender: FDA-Public Use
  Company Number: US-JNJFOC-20190917727

PATIENT
  Sex: Male

DRUGS (15)
  1. FAMOTIDINE. [Concomitant]
     Active Substance: FAMOTIDINE
  2. SIMVASTATIN. [Concomitant]
     Active Substance: SIMVASTATIN
  3. COQ 10 [Concomitant]
     Active Substance: UBIDECARENONE
  4. ENALAPRIL [Concomitant]
     Active Substance: ENALAPRIL
  5. PLAVIX [Concomitant]
     Active Substance: CLOPIDOGREL BISULFATE
  6. IMBRUVICA [Suspect]
     Active Substance: IBRUTINIB
     Indication: CHRONIC LYMPHOCYTIC LEUKAEMIA
     Dosage: 280 MG, QD
     Route: 048
     Dates: start: 20190226
  7. CHOLECALCIFEROL [Concomitant]
     Active Substance: CHOLECALCIFEROL
  8. MUPIROCIN. [Concomitant]
     Active Substance: MUPIROCIN
  9. METFORMIN [Concomitant]
     Active Substance: METFORMIN HYDROCHLORIDE
  10. NAPROXEN. [Concomitant]
     Active Substance: NAPROXEN
  11. CITRUCEL [Concomitant]
     Active Substance: METHYLCELLULOSE (4000 MPA.S)
  12. TAMSULOSIN [Concomitant]
     Active Substance: TAMSULOSIN
  13. METOPROLOL TARTRATE. [Concomitant]
     Active Substance: METOPROLOL TARTRATE
  14. ELIQUIS [Suspect]
     Active Substance: APIXABAN
     Indication: PRODUCT USED FOR UNKNOWN INDICATION
     Dosage: UNK
     Route: 065
  15. FINASTERIDE. [Concomitant]
     Active Substance: FINASTERIDE

REACTIONS (4)
  - Constipation [Unknown]
  - Urinary bladder haemorrhage [Unknown]
  - Prostatic haemorrhage [Unknown]
  - Atrial flutter [Unknown]

NARRATIVE: CASE EVENT DATE: 2019
